FAERS Safety Report 7035756-5 (Version None)
Quarter: 2010Q4

REPORT INFORMATION
  Report Type: 
  Country: None (occurrence: None)
  Receive Date: 20101008
  Receipt Date: 20100928
  Transmission Date: 20110411
  Serious: Yes (Other)
  Sender: FDA-Public Use
  Company Number: US-JNJFOC-20100908787

PATIENT
  Age: 46 Year
  Sex: Male
  Weight: 83.92 kg

DRUGS (3)
  1. TYLENOL ALLERGY MULTI-SYMPTOM COOL BURST [Suspect]
     Indication: RHINORRHOEA
     Dosage: 2 CAPLETS ONE TIME
     Route: 048
  2. TYLENOL ALLERGY MULTI-SYMPTOM COOL BURST [Suspect]
     Indication: NASOPHARYNGITIS
     Dosage: 2 CAPLETS ONE TIME
     Route: 048
  3. TYLENOL ALLERGY MULTI-SYMPTOM COOL BURST [Suspect]
     Indication: MULTIPLE ALLERGIES
     Dosage: 2 CAPLETS ONE TIME
     Route: 048

REACTIONS (3)
  - DYSPNOEA [None]
  - EXPIRED DRUG ADMINISTERED [None]
  - SWOLLEN TONGUE [None]
